FAERS Safety Report 16466167 (Version 2)
Quarter: 2019Q3

REPORT INFORMATION
  Report Type: Spontaneous
  Country: US (occurrence: US)
  Receive Date: 20190621
  Receipt Date: 20190924
  Transmission Date: 20191004
  Serious: No
  Sender: FDA-Public Use
  Company Number: US-ACORDA-ACO_159306_2019

PATIENT
  Age: 76 Year
  Sex: Male
  Weight: 63.49 kg

DRUGS (1)
  1. INBRIJA [Suspect]
     Active Substance: LEVODOPA
     Indication: PARKINSON^S DISEASE
     Dosage: 84 MILLIGRAM (2 CAPSULES OF 42MG) 3 TIMES DAILY AS NEEDED
     Dates: start: 20190610

REACTIONS (3)
  - Incorrect dose administered [Unknown]
  - Device issue [Recovered/Resolved]
  - Cough [Recovered/Resolved]

NARRATIVE: CASE EVENT DATE: 20190610
